FAERS Safety Report 23431630 (Version 2)
Quarter: 2024Q1

REPORT INFORMATION
  Report Type: Spontaneous
  Country: DE (occurrence: DE)
  Receive Date: 20240123
  Receipt Date: 20240125
  Transmission Date: 20240410
  Serious: Yes (Death, Life-Threatening, Other)
  Sender: FDA-Public Use
  Company Number: DE-MLMSERVICE-20240105-4759782-1

PATIENT
  Age: 74 Year
  Sex: Male

DRUGS (19)
  1. LEUCOVORIN [Suspect]
     Active Substance: LEUCOVORIN\LEUCOVORIN CALCIUM
     Indication: Cholangiocarcinoma
     Dosage: 4800 MILLIGRAM/SQ. METER, CYCLICAL
     Route: 065
     Dates: end: 200202
  2. GEMCITABINE [Suspect]
     Active Substance: GEMCITABINE
     Indication: Cholangiocarcinoma
     Dosage: 1000 MILLIGRAM/SQ. METER (ON DAY 1 AND 8)
     Route: 065
     Dates: end: 201907
  3. GEMCITABINE [Suspect]
     Active Substance: GEMCITABINE
     Dosage: 2000 MILLIGRAM/SQ. METER, CYCLICAL
     Route: 065
     Dates: end: 201907
  4. IRINOTECAN [Suspect]
     Active Substance: IRINOTECAN
     Indication: Cholangiocarcinoma
     Dosage: 180 MILLIGRAM/SQ. METER (EVERY 2 WEEKS)
     Route: 065
     Dates: end: 202003
  5. IRINOTECAN [Suspect]
     Active Substance: IRINOTECAN
     Dosage: 720 MILLIGRAM/SQ. METER, CYCLICAL
     Route: 065
     Dates: end: 202003
  6. OXALIPLATIN [Suspect]
     Active Substance: OXALIPLATIN
     Indication: Cholangiocarcinoma
     Dosage: 100 MILLIGRAM/SQ. METER (EVERY 2 WEEKS)
     Route: 065
     Dates: end: 202002
  7. CISPLATIN [Suspect]
     Active Substance: CISPLATIN
     Indication: Cholangiocarcinoma
     Dosage: 25 MILLIGRAM/SQ. METER (ON DAY 1 AND 8)
     Route: 065
     Dates: end: 201907
  8. CISPLATIN [Suspect]
     Active Substance: CISPLATIN
     Dosage: 50 MILLIGRAM/SQ. METER, CYCLICAL
     Route: 065
     Dates: end: 201907
  9. FLUOROURACIL [Suspect]
     Active Substance: FLUOROURACIL
     Indication: Cholangiocarcinoma
     Dosage: 400 MILLIGRAM/SQ. METER (EVERY 2 WEEKS)
     Route: 065
     Dates: end: 202002
  10. FLUOROURACIL [Suspect]
     Active Substance: FLUOROURACIL
     Dosage: 3000 MILLIGRAM/SQ. METER (48-H INFUSION, EVERY 2 WEEKS)
     Route: 065
     Dates: end: 202002
  11. FLUOROURACIL [Suspect]
     Active Substance: FLUOROURACIL
     Dosage: 2400 MILLIGRAM/SQ. METER (48-H INFUSION, EVERY 2 WEEKS)
     Route: 065
     Dates: end: 202002
  12. FLUOROURACIL [Suspect]
     Active Substance: FLUOROURACIL
     Dosage: 400 MILLIGRAM/SQ. METER (EVERY 2 WEEKS)
     Route: 065
     Dates: end: 202003
  13. FOLIC ACID [Suspect]
     Active Substance: FOLIC ACID
     Indication: Cholangiocarcinoma
     Dosage: 400 MILLIGRAM/SQ. METER (EVERY 2 WEEKS)
     Route: 065
     Dates: end: 202002
  14. FOLIC ACID [Suspect]
     Active Substance: FOLIC ACID
     Dosage: 400 MILLIGRAM/SQ. METER (EVERY 2 WEEKS)
     Route: 065
     Dates: end: 202003
  15. PEMIGATINIB [Suspect]
     Active Substance: PEMIGATINIB
     Indication: Cholangiocarcinoma
     Dosage: 13.5 MILLIGRAM, ONCE A DAY (FOR 2 WEEKS, FOLLOWED BY 1-WEEK PAUSE)
     Route: 065
     Dates: end: 202005
  16. PEMIGATINIB [Suspect]
     Active Substance: PEMIGATINIB
     Dosage: 9 MILLIGRAM, ONCE A DAY (FOR 2 WEEKS FOLLOWED BY 1-WEEKPAUSE)
     Route: 065
     Dates: end: 202005
  17. PEMIGATINIB [Suspect]
     Active Substance: PEMIGATINIB
     Dosage: 189 MILLIGRAM, CYCLICAL (13.5 MG/DAY FOR 2 WEEKS, FOLLOWED BY 1-WEEK PAUSE)
     Route: 065
     Dates: start: 202005, end: 2021
  18. PEMIGATINIB [Suspect]
     Active Substance: PEMIGATINIB
     Dosage: 126 MILLIGRAM, CYCLICAL
     Route: 065
     Dates: start: 2021, end: 2021
  19. ERYTHROPOIETIN [Concomitant]
     Active Substance: ERYTHROPOIETIN
     Indication: Anaemia
     Dosage: UNK
     Route: 065

REACTIONS (4)
  - Pneumonia [Fatal]
  - Myelodysplastic syndrome [Fatal]
  - Acute myeloid leukaemia [Fatal]
  - Drug ineffective [Unknown]

NARRATIVE: CASE EVENT DATE: 20210801
